FAERS Safety Report 6506031-X (Version None)
Quarter: 2009Q4

REPORT INFORMATION
  Report Type: 
  Country: None (occurrence: None)
  Receive Date: 20091201
  Receipt Date: 20081009
  Transmission Date: 20100525
  Serious: Yes (Hospitalization)
  Sender: FDA-Public Use
  Company Number: 2008-185057-NL

PATIENT
  Age: 16 Year
  Sex: Female
  Weight: 103.9 kg

DRUGS (2)
  1. NUVARING [Suspect]
     Indication: CONTRACEPTION
     Dates: start: 20080601, end: 20081003
  2. CORTICOSTEROIDS [Concomitant]

REACTIONS (1)
  - DEEP VEIN THROMBOSIS [None]
